FAERS Safety Report 8390215-2 (Version None)
Quarter: 2012Q2

REPORT INFORMATION
  Report Type: 
  Country: None (occurrence: None)
  Receive Date: 20120518
  Receipt Date: 20120515
  Transmission Date: 20120825
  Serious: Yes (Hospitalization)
  Sender: FDA-Public Use
  Company Number: 2008SP016394

PATIENT
  Age: 65 Year
  Sex: Female
  Weight: 74 kg

DRUGS (19)
  1. RABEPRAZOLE SODIUM [Concomitant]
  2. BONIVA [Concomitant]
  3. BECLOMETHASONE DIPROPIONATE [Concomitant]
  4. CIPROFLOXACIN HYDROCHLORIDE [Concomitant]
  5. XANAX [Concomitant]
  6. VIRAFERONPEG [Suspect]
     Indication: HEPATITIS C
     Dosage: 45 MCG;QW SC 40 MCG;QW 35 MCG;QW 30 MCG;QW
     Route: 058
     Dates: start: 20070220, end: 20070821
  7. VIRAFERONPEG [Suspect]
     Indication: HEPATITIS C
     Dosage: 45 MCG;QW SC 40 MCG;QW 35 MCG;QW 30 MCG;QW
     Route: 058
     Dates: start: 20080319, end: 20080808
  8. VIRAFERONPEG [Suspect]
     Indication: HEPATITIS C
     Dosage: 45 MCG;QW SC 40 MCG;QW 35 MCG;QW 30 MCG;QW
     Route: 058
     Dates: start: 20080809, end: 20090428
  9. VIRAFERONPEG [Suspect]
     Indication: HEPATITIS C
     Dosage: 45 MCG;QW SC 40 MCG;QW 35 MCG;QW 30 MCG;QW
     Route: 058
     Dates: start: 20061212, end: 20070206
  10. VIRAFERONPEG [Suspect]
     Indication: HEPATITIS C
     Dosage: 45 MCG;QW SC 40 MCG;QW 35 MCG;QW 30 MCG;QW
     Route: 058
     Dates: start: 20070904, end: 20080311
  11. REBETOL [Suspect]
     Indication: HEPATITIS C
     Dosage: 1200 MG;QD;PO 1000 MG;QD;PO 800 MG;QD;PO 600 MG;QD;PO 400 MG;QD;PO
     Route: 048
     Dates: start: 20080319, end: 20080807
  12. REBETOL [Suspect]
     Indication: HEPATITIS C
     Dosage: 1200 MG;QD;PO 1000 MG;QD;PO 800 MG;QD;PO 600 MG;QD;PO 400 MG;QD;PO
     Route: 048
     Dates: start: 20061212, end: 20070209
  13. REBETOL [Suspect]
     Indication: HEPATITIS C
     Dosage: 1200 MG;QD;PO 1000 MG;QD;PO 800 MG;QD;PO 600 MG;QD;PO 400 MG;QD;PO
     Route: 048
     Dates: start: 20070831, end: 20080312
  14. REBETOL [Suspect]
     Indication: HEPATITIS C
     Dosage: 1200 MG;QD;PO 1000 MG;QD;PO 800 MG;QD;PO 600 MG;QD;PO 400 MG;QD;PO
     Route: 048
     Dates: start: 20080808, end: 20090428
  15. REBETOL [Suspect]
     Indication: HEPATITIS C
     Dosage: 1200 MG;QD;PO 1000 MG;QD;PO 800 MG;QD;PO 600 MG;QD;PO 400 MG;QD;PO
     Route: 048
     Dates: start: 20070210, end: 20070830
  16. ZITHROMAX [Concomitant]
  17. COUMADIN [Concomitant]
  18. INOHEP [Concomitant]
  19. FURADANTIN [Concomitant]

REACTIONS (4)
  - PULMONARY EMBOLISM [None]
  - ASTHENIA [None]
  - HEPATIC CYST [None]
  - WEIGHT DECREASED [None]
